FAERS Safety Report 5474758-7 (Version None)
Quarter: 2007Q4

REPORT INFORMATION
  Report Type: 
  Country: None (occurrence: None)
  Receive Date: 20071002
  Receipt Date: 20070927
  Transmission Date: 20080405
  Serious: Yes (Hospitalization)
  Sender: FDA-Public Use
  Company Number: A0684702A

PATIENT
  Age: 84 Year
  Sex: Female

DRUGS (6)
  1. COREG [Suspect]
     Indication: AORTIC VALVE REPLACEMENT
     Dosage: 25MG TWICE PER DAY
     Route: 048
     Dates: start: 20000101
  2. NORVASC [Concomitant]
  3. KLOR-CON [Concomitant]
  4. ASPIRIN [Concomitant]
  5. HYDROCHLOROTHIAZIDE [Concomitant]
  6. LIPITOR [Concomitant]

REACTIONS (6)
  - GAIT DISTURBANCE [None]
  - HYPOAESTHESIA [None]
  - HYPOAESTHESIA FACIAL [None]
  - PAIN [None]
  - PARAESTHESIA [None]
  - PRESYNCOPE [None]
